FAERS Safety Report 10196753 (Version 4)
Quarter: 2014Q3

REPORT INFORMATION
  Report Type: Spontaneous
  Country: US (occurrence: US)
  Receive Date: 20140527
  Receipt Date: 20140707
  Transmission Date: 20150326
  Serious: No
  Sender: FDA-Public Use
  Company Number: US-009507513-1404USA014800

PATIENT
  Age: 42 Year
  Sex: Female
  Weight: 82.54 kg

DRUGS (1)
  1. OXYTROL FOR WOMEN [Suspect]
     Active Substance: OXYBUTYNIN
     Indication: BLADDER DISORDER
     Dosage: UNKNOWN
     Route: 062
     Dates: start: 20140410, end: 20140421

REACTIONS (7)
  - Application site vesicles [Recovering/Resolving]
  - Application site pruritus [Recovered/Resolved]
  - Application site pain [Recovering/Resolving]
  - Skin haemorrhage [Recovering/Resolving]
  - Application site erythema [Recovered/Resolved]
  - Application site burn [Recovered/Resolved]
  - Product adhesion issue [Unknown]

NARRATIVE: CASE EVENT DATE: 201404
